FAERS Safety Report 6291155-5 (Version None)
Quarter: 2009Q3

REPORT INFORMATION
  Report Type: 
  Country: None (occurrence: None)
  Receive Date: 20090730
  Receipt Date: 20090729
  Transmission Date: 20100115
  Serious: Yes (Hospitalization)
  Sender: FDA-Public Use
  Company Number: B0584376A

PATIENT
  Sex: Male
  Weight: 68.7 kg

DRUGS (8)
  1. TOPOTECAN [Suspect]
     Dosage: 2.61MGM2 UNKNOWN
     Route: 042
     Dates: start: 20090615, end: 20090619
  2. AVANDAMET [Concomitant]
     Dosage: 4000MG UNKNOWN
     Route: 048
  3. DIAMICRON [Concomitant]
     Dosage: 80MG UNKNOWN
     Route: 048
  4. TIOTROPIUM BROMIDE [Concomitant]
     Indication: CHRONIC OBSTRUCTIVE PULMONARY DISEASE
     Route: 042
  5. ANASMA [Concomitant]
     Indication: CHRONIC OBSTRUCTIVE PULMONARY DISEASE
     Route: 042
  6. BISOPROLOL [Concomitant]
     Indication: DIURETIC THERAPY
     Dosage: 2.5MG UNKNOWN
     Route: 048
  7. OMEPRAZOLE [Concomitant]
     Indication: PROPHYLAXIS
     Dosage: 20MG UNKNOWN
     Route: 048
  8. TORSEMIDE [Concomitant]
     Indication: DIURETIC THERAPY
     Dosage: 5MG UNKNOWN
     Route: 048

REACTIONS (6)
  - ATRIAL FLUTTER [None]
  - GENERAL PHYSICAL HEALTH DETERIORATION [None]
  - LEUKOPENIA [None]
  - NEUTROPENIA [None]
  - RESPIRATORY TRACT INFECTION [None]
  - THROMBOCYTOPENIA [None]
